FAERS Safety Report 8077150-4 (Version None)
Quarter: 2012Q1

REPORT INFORMATION
  Report Type: 
  Country: None (occurrence: None)
  Receive Date: 20120127
  Receipt Date: 20120120
  Transmission Date: 20120608
  Serious: Yes (Disabling)
  Sender: FDA-Public Use
  Company Number: PHHY2011AU111752

PATIENT
  Sex: Female

DRUGS (1)
  1. GILENYA [Suspect]
     Indication: RELAPSING-REMITTING MULTIPLE SCLEROSIS
     Dosage: UNK UKN
     Route: 048
     Dates: start: 20111111, end: 20111221

REACTIONS (10)
  - INFLUENZA LIKE ILLNESS [None]
  - BLOOD ALKALINE PHOSPHATASE INCREASED [None]
  - LYMPHOCYTE COUNT DECREASED [None]
  - WHITE BLOOD CELL COUNT DECREASED [None]
  - INCREASED UPPER AIRWAY SECRETION [None]
  - MENSTRUATION IRREGULAR [None]
  - ASPARTATE AMINOTRANSFERASE INCREASED [None]
  - METRORRHAGIA [None]
  - FATIGUE [None]
  - PRODUCTIVE COUGH [None]
